FAERS Safety Report 24677087 (Version 2)
Quarter: 2024Q4

REPORT INFORMATION
  Report Type: Report from Study
  Country: GB (occurrence: GB)
  Receive Date: 20241129
  Receipt Date: 20241206
  Transmission Date: 20250115
  Serious: Yes (Hospitalization, Other)
  Sender: GLAXOSMITHKLINE
  Company Number: GB-GSK-GB2024EME038163

PATIENT

DRUGS (2)
  1. MEPOLIZUMAB [Suspect]
     Active Substance: MEPOLIZUMAB
     Indication: Asthma
     Dosage: 100 MG, Q4W
     Dates: start: 202310
  2. MEPOLIZUMAB [Suspect]
     Active Substance: MEPOLIZUMAB
     Indication: Asthma
     Dosage: UNK
     Dates: start: 202401

REACTIONS (14)
  - Lower respiratory tract infection [Recovering/Resolving]
  - Aphonia [Recovered/Resolved]
  - Influenza like illness [Recovered/Resolved]
  - Dental operation [Recovered/Resolved]
  - Asthma [Recovered/Resolved]
  - Dyspnoea [Recovered/Resolved]
  - Wheezing [Unknown]
  - Pyrexia [Unknown]
  - Body temperature increased [Recovering/Resolving]
  - Hypertension [Recovering/Resolving]
  - Blood pressure increased [Recovered/Resolved]
  - Blood pressure diastolic increased [Recovered/Resolved]
  - Aphasia [Recovered/Resolved]
  - Vocal cord disorder [Recovered/Resolved]

NARRATIVE: CASE EVENT DATE: 20240404
